FAERS Safety Report 6075835-2 (Version None)
Quarter: 2009Q1

REPORT INFORMATION
  Report Type: 
  Country: None (occurrence: None)
  Receive Date: 20090212
  Receipt Date: 20090202
  Transmission Date: 20090719
  Serious: Yes (Hospitalization)
  Sender: FDA-Public Use
  Company Number: FR-PFIZER INC-2009166774

PATIENT

DRUGS (8)
  1. NEURONTIN [Suspect]
     Route: 048
     Dates: start: 20081127, end: 20081203
  2. CYMEVAN [Suspect]
     Dosage: 500 MG, 1X/DAY
     Route: 042
     Dates: start: 20081128, end: 20081206
  3. LAMALINE [Suspect]
     Route: 048
     Dates: start: 20070101, end: 20081208
  4. DAFALGAN [Suspect]
     Route: 048
     Dates: start: 20070101, end: 20081208
  5. ENOXAPARIN SODIUM [Concomitant]
     Route: 058
     Dates: start: 20081127
  6. BIPHOSPHONATE [Concomitant]
     Dosage: UNK
     Dates: start: 20071101
  7. TRAMADOL [Concomitant]
  8. PARACETAMOL [Concomitant]

REACTIONS (1)
  - CYTOLYTIC HEPATITIS [None]
